FAERS Safety Report 14117028 (Version 9)
Quarter: 2020Q3

REPORT INFORMATION
  Report Type: Report from Study
  Country: US (occurrence: US)
  Receive Date: 20171023
  Receipt Date: 20200713
  Transmission Date: 20201102
  Serious: Yes (Hospitalization, Other)
  Sender: FDA-Public Use
  Company Number: US-ARIAD PHARMACEUTICALS, INC-2017US008967

PATIENT
  Sex: Male
  Weight: 174.61 kg

DRUGS (1)
  1. BRIGATINIB [Suspect]
     Active Substance: BRIGATINIB
     Indication: BRONCHIAL CARCINOMA
     Dosage: 180 MILLIGRAM, QD
     Route: 048
     Dates: start: 20170830

REACTIONS (6)
  - Psychotic disorder [Unknown]
  - Illness [Unknown]
  - Nausea [Unknown]
  - Bronchial carcinoma [Unknown]
  - Brain neoplasm malignant [Unknown]
  - Vomiting [Unknown]
